FAERS Safety Report 12971481 (Version 1)
Quarter: 2016Q4

REPORT INFORMATION
  Report Type: Spontaneous
  Country: US (occurrence: US)
  Receive Date: 20161123
  Receipt Date: 20161123
  Transmission Date: 20170207
  Serious: No
  Sender: FDA-Public Use
  Company Number: US-JAZZ-2016-US-020154

PATIENT
  Sex: Male

DRUGS (34)
  1. MELATONIN [Concomitant]
     Active Substance: MELATONIN
  2. TRILEPTAL [Concomitant]
     Active Substance: OXCARBAZEPINE
  3. KETOROLAC [Concomitant]
     Active Substance: KETOROLAC\KETOROLAC TROMETHAMINE
  4. STRATTERA [Concomitant]
     Active Substance: ATOMOXETINE HYDROCHLORIDE
  5. ARSENICUM ALBUM [Concomitant]
  6. SEROQUEL [Concomitant]
     Active Substance: QUETIAPINE FUMARATE
  7. ZOFRAN [Concomitant]
     Active Substance: ONDANSETRON HYDROCHLORIDE
  8. NEURONTIN [Concomitant]
     Active Substance: GABAPENTIN
  9. NORCO [Concomitant]
     Active Substance: ACETAMINOPHEN\HYDROCODONE BITARTRATE
  10. LAMICTAL [Concomitant]
     Active Substance: LAMOTRIGINE
  11. PICAMILON [Concomitant]
  12. XYREM [Suspect]
     Active Substance: SODIUM OXYBATE
     Indication: SLEEP DISORDER
     Dosage: 3 G, QD
     Route: 048
     Dates: start: 200809, end: 2008
  13. VALERIAN [Concomitant]
     Active Substance: VALERIAN
  14. VISTARIL [Concomitant]
     Active Substance: HYDROXYZINE PAMOATE
  15. MAGNESIA PHOSPHORICA [Concomitant]
  16. VALIUM [Concomitant]
     Active Substance: DIAZEPAM
  17. FLUMAZENIL. [Concomitant]
     Active Substance: FLUMAZENIL
  18. GABITRIL [Concomitant]
     Active Substance: TIAGABINE HYDROCHLORIDE
  19. GLUTAMINE [Concomitant]
     Active Substance: GLUTAMINE
  20. ATIVAN [Concomitant]
     Active Substance: LORAZEPAM
  21. PHENOBARBITAL. [Concomitant]
     Active Substance: PHENOBARBITAL
  22. ZANAFLEX [Concomitant]
     Active Substance: TIZANIDINE HYDROCHLORIDE
  23. STAVZOR [Concomitant]
     Active Substance: VALPROIC ACID
  24. ACETAMINOPHEN W/HYDROCODONE [Concomitant]
     Active Substance: ACETAMINOPHEN\HYDROCODONE
  25. LIBRIUM [Concomitant]
     Active Substance: CHLORDIAZEPOXIDE HYDROCHLORIDE
  26. XYREM [Suspect]
     Active Substance: SODIUM OXYBATE
     Dosage: 2.25 G, BID
     Route: 048
     Dates: start: 201211, end: 201408
  27. BACLOFEN. [Concomitant]
     Active Substance: BACLOFEN
  28. KLONOPIN [Concomitant]
     Active Substance: CLONAZEPAM
  29. VIAGRA [Concomitant]
     Active Substance: SILDENAFIL CITRATE
  30. DOXEPIN [Concomitant]
     Active Substance: DOXEPIN
  31. STAVZOR [Concomitant]
     Active Substance: VALPROIC ACID
  32. DEPAKOTE [Concomitant]
     Active Substance: DIVALPROEX SODIUM
  33. TYROSINE [Concomitant]
     Active Substance: TYROSINE
  34. PROPRANOLOL [Concomitant]
     Active Substance: PROPRANOLOL\PROPRANOLOL HYDROCHLORIDE

REACTIONS (2)
  - Therapeutic response unexpected [Unknown]
  - Pre-existing condition improved [Unknown]
